FAERS Safety Report 15806730 (Version 1)
Quarter: 2019Q1

REPORT INFORMATION
  Report Type: Other
  Country: CA (occurrence: CA)
  Receive Date: 20190110
  Receipt Date: 20190110
  Transmission Date: 20190417
  Serious: Yes (Other)
  Sender: FDA-Public Use
  Company Number: CA-BIODELIVERY SCIENCES INTERNATIONAL-2019BDSI0010

PATIENT
  Age: 22 Year
  Sex: Male

DRUGS (1)
  1. FENTANYL CITRATE. [Suspect]
     Active Substance: FENTANYL CITRATE
     Indication: PRODUCT USED FOR UNKNOWN INDICATION
     Dosage: FORMULATION: PILLS; CONSUMING MORE THAN 20 PILLS PER DAY
     Route: 048

REACTIONS (5)
  - Drug abuse [Unknown]
  - Intentional overdose [Unknown]
  - Accidental overdose [Unknown]
  - Drug withdrawal syndrome [Unknown]
  - Drug dependence [Not Recovered/Not Resolved]
